FAERS Safety Report 5989365-7 (Version None)
Quarter: 2008Q4

REPORT INFORMATION
  Report Type: 
  Country: None (occurrence: None)
  Receive Date: 20081205
  Receipt Date: 20081121
  Transmission Date: 20090506
  Serious: Yes (Hospitalization)
  Sender: FDA-Public Use
  Company Number: SPV1-2008-02595

PATIENT
  Sex: Male

DRUGS (3)
  1. DAYTRANA [Suspect]
     Dosage: 1X/DAY:QD, TRANSDERMAL
     Route: 062
     Dates: start: 20070101
  2. PREDNISONE [Concomitant]
  3. FERROUS SULFATE TAB [Concomitant]

REACTIONS (6)
  - ADVERSE EVENT [None]
  - CONDITION AGGRAVATED [None]
  - CROHN'S DISEASE [None]
  - DEVICE FAILURE [None]
  - OFF LABEL USE [None]
  - PRODUCT QUALITY ISSUE [None]
